FAERS Safety Report 7170445-8 (Version None)
Quarter: 2010Q4

REPORT INFORMATION
  Report Type: 
  Country: None (occurrence: None)
  Receive Date: 20101214
  Receipt Date: 20101214
  Transmission Date: 20110411
  Serious: Yes (Life-Threatening, Hospitalization)
  Sender: FDA-Public Use
  Company Number: None

PATIENT
  Sex: Male
  Weight: 72.5755 kg

DRUGS (2)
  1. SINGULAIR [Suspect]
     Indication: ASTHMA
     Dosage: 1 TAB EACH DAY PO
     Route: 048
     Dates: start: 20070401, end: 20101206
  2. SINGULAIR [Suspect]
     Indication: HYPERSENSITIVITY
     Dosage: 1 TAB EACH DAY PO
     Route: 048
     Dates: start: 20070401, end: 20101206

REACTIONS (1)
  - SUICIDAL IDEATION [None]
